APPROVED DRUG PRODUCT: CYPROHEPTADINE HYDROCHLORIDE
Active Ingredient: CYPROHEPTADINE HYDROCHLORIDE
Strength: 2MG/5ML
Dosage Form/Route: SYRUP;ORAL
Application: A040668 | Product #001 | TE Code: AA
Applicant: RISING PHARMA HOLDINGS INC
Approved: Jun 28, 2006 | RLD: No | RS: Yes | Type: RX